FAERS Safety Report 7377384-8 (Version None)
Quarter: 2011Q1

REPORT INFORMATION
  Report Type: 
  Country: None (occurrence: None)
  Receive Date: 20110328
  Receipt Date: 20110318
  Transmission Date: 20110831
  Serious: Yes (Other)
  Sender: FDA-Public Use
  Company Number: US-PFIZER INC-HQWYE220312AUG04

PATIENT
  Sex: Female
  Weight: 68 kg

DRUGS (3)
  1. HYDROCODONE [Concomitant]
     Indication: MUSCULOSKELETAL PAIN
  2. HYDROCODONE [Concomitant]
     Indication: NECK PAIN
     Dosage: UNK
     Dates: start: 19990101
  3. PREMPRO [Suspect]
     Indication: HORMONE REPLACEMENT THERAPY
     Dosage: 0.625/2.5
     Route: 048

REACTIONS (1)
  - BREAST CANCER FEMALE [None]
